FAERS Safety Report 13671649 (Version 2)
Quarter: 2017Q2

REPORT INFORMATION
  Report Type: Spontaneous
  Country: KR (occurrence: KR)
  Receive Date: 20170620
  Receipt Date: 20170628
  Transmission Date: 20170830
  Serious: Yes (Other)
  Sender: FDA-Public Use
  Company Number: KR-PFIZER INC-2017261231

PATIENT
  Age: 9 Decade
  Sex: Female

DRUGS (1)
  1. NEURONTIN [Suspect]
     Active Substance: GABAPENTIN
     Dosage: 100 MG, UNK
     Route: 048
     Dates: start: 20170605

REACTIONS (1)
  - Blindness [Unknown]

NARRATIVE: CASE EVENT DATE: 201706
